FAERS Safety Report 4408521-2 (Version None)
Quarter: 2004Q3

REPORT INFORMATION
  Report Type: 
  Country: None (occurrence: None)
  Receive Date: 20040726
  Receipt Date: 20040726
  Transmission Date: 20050211
  Serious: Yes (Hospitalization)
  Sender: FDA-Public Use
  Company Number: None

PATIENT
  Age: 49 Year
  Sex: Female

DRUGS (1)
  1. PHENYTOIN [Suspect]

REACTIONS (8)
  - ALANINE AMINOTRANSFERASE INCREASED [None]
  - ANGIONEUROTIC OEDEMA [None]
  - ASPARTATE AMINOTRANSFERASE INCREASED [None]
  - DERMATITIS EXFOLIATIVE [None]
  - EOSINOPHILIA [None]
  - JAUNDICE [None]
  - RASH [None]
  - WHITE BLOOD CELL COUNT INCREASED [None]
